FAERS Safety Report 18800286 (Version 1)
Quarter: 2021Q1

REPORT INFORMATION
  Report Type: Spontaneous
  Country: US (occurrence: US)
  Receive Date: 20210128
  Receipt Date: 20210128
  Transmission Date: 20210419
  Serious: Yes (Hospitalization)
  Sender: FDA-Public Use
  Company Number: None

PATIENT
  Age: 12 Year
  Sex: Female
  Weight: 36.6 kg

DRUGS (22)
  1. LIDOCAINE. [Concomitant]
     Active Substance: LIDOCAINE
  2. KEPPRA [Concomitant]
     Active Substance: LEVETIRACETAM
  3. MIRALAX [Concomitant]
     Active Substance: POLYETHYLENE GLYCOL 3350
  4. NORMAL SALINE BOLUS [Concomitant]
  5. ACYCLOVIR. [Concomitant]
     Active Substance: ACYCLOVIR
  6. VANCOMYCIN [Concomitant]
     Active Substance: VANCOMYCIN
  7. TYLENOL [Concomitant]
     Active Substance: ACETAMINOPHEN
  8. DOLAREM [Concomitant]
  9. GLYCERIN. [Concomitant]
     Active Substance: GLYCERIN
  10. PEPCID [Concomitant]
     Active Substance: FAMOTIDINE
  11. ZOFRAN [Concomitant]
     Active Substance: ONDANSETRON HYDROCHLORIDE
  12. REMDESIVIR 200MG [Suspect]
     Active Substance: REMDESIVIR
     Route: 042
  13. SODIUM CHLORIDE. [Concomitant]
     Active Substance: SODIUM CHLORIDE
  14. REMDESIVIR 200MG [Suspect]
     Active Substance: REMDESIVIR
     Indication: COVID-19
     Route: 042
     Dates: start: 20210105, end: 20210109
  15. NORMAL SALINE BOLUS [Concomitant]
  16. ACETAMINOPHEN. [Concomitant]
     Active Substance: ACETAMINOPHEN
  17. PROPOFOL. [Concomitant]
     Active Substance: PROPOFOL
  18. ROCURONIUM [Concomitant]
     Active Substance: ROCURONIUM BROMIDE
  19. MAGNESIUM [Concomitant]
     Active Substance: MAGNESIUM
  20. CEFTRIAXONE. [Concomitant]
     Active Substance: CEFTRIAXONE
  21. ATIVAN [Concomitant]
     Active Substance: LORAZEPAM
  22. POLYSPORIN [Concomitant]
     Active Substance: BACITRACIN ZINC\POLYMYXIN B SULFATE

REACTIONS (5)
  - Pallor [None]
  - Headache [None]
  - Pyrexia [None]
  - Amnesia [None]
  - Vomiting [None]

NARRATIVE: CASE EVENT DATE: 20210126
